FAERS Safety Report 9887621 (Version 1)
Quarter: 2013Q4

REPORT INFORMATION
  Report Type: Spontaneous
  Country: US (occurrence: None)
  Receive Date: 20131223
  Receipt Date: 20131223
  Transmission Date: 20140711
  Serious: Yes (Other)
  Sender: FDA-Public Use
  Company Number: 217375LEO

PATIENT
  Age: 54 Year
  Sex: Male

DRUGS (2)
  1. PICATO GEL [Suspect]
     Indication: SKIN DISCOLOURATION
     Dosage: 1 TUBE DAILY, USED ONCE, TOPICAL
     Route: 061
     Dates: start: 20120426
  2. PICATO GEL [Suspect]
     Indication: SKIN CANCER
     Dosage: 1 TUBE DAILY, USED ONCE, TOPICAL
     Route: 061
     Dates: start: 20120426

REACTIONS (5)
  - Feeling hot [None]
  - Thermal burn [None]
  - Facial pain [None]
  - Swelling face [None]
  - Blister [None]
